FAERS Safety Report 6857454-0 (Version None)
Quarter: 2010Q3

REPORT INFORMATION
  Report Type: 
  Country: None (occurrence: None)
  Receive Date: 20100719
  Receipt Date: 20080122
  Transmission Date: 20110219
  Serious: No
  Sender: FDA-Public Use
  Company Number: US-PFIZER INC-2008008340

PATIENT
  Age: 70 Year
  Sex: Male
  Weight: 65.9 kg

DRUGS (8)
  1. CHANTIX [Suspect]
     Indication: SMOKING CESSATION THERAPY
     Dates: start: 20080117
  2. ANTIBIOTICS [Concomitant]
     Indication: NASOPHARYNGITIS
  3. LOPRESSOR [Concomitant]
     Indication: HYPERTENSION
  4. FISH OIL [Concomitant]
  5. CALCIUM [Concomitant]
  6. VITAMINS [Concomitant]
  7. PRILOSEC [Concomitant]
  8. LOVASTATIN [Concomitant]
     Indication: BLOOD CHOLESTEROL INCREASED

REACTIONS (5)
  - ABNORMAL DREAMS [None]
  - FREQUENT BOWEL MOVEMENTS [None]
  - HEART RATE INCREASED [None]
  - INSOMNIA [None]
  - TENSION [None]
